FAERS Safety Report 22061478 (Version 4)
Quarter: 2024Q1

REPORT INFORMATION
  Report Type: Report from Study
  Country: HU (occurrence: HU)
  Receive Date: 20230304
  Receipt Date: 20240326
  Transmission Date: 20240409
  Serious: Yes (Hospitalization, Other)
  Sender: FDA-Public Use
  Company Number: HU-ABBVIE-22K-076-4529409-00

PATIENT
  Sex: Male

DRUGS (10)
  1. CARBIDOPA\LEVODOPA [Suspect]
     Active Substance: CARBIDOPA\LEVODOPA
     Indication: Parkinson^s disease
     Dosage: MORNING DOSE: 9.5 ML; CONTINUOUS DOSE: 3.5 / 4.8 ML PER HOUR; EXTRA DOSE: 3.5 ML
     Route: 050
     Dates: start: 20140201, end: 20220919
  2. CARBIDOPA\LEVODOPA [Suspect]
     Active Substance: CARBIDOPA\LEVODOPA
  3. GABAPENTIN [Concomitant]
     Active Substance: GABAPENTIN
     Indication: Product used for unknown indication
     Dosage: TIME INTERVAL: 0.33333333 DAYS: 900 MILLIGRAM?FORM STRENGTH: 300 MG
     Route: 048
  4. FAMOTIDINE [Concomitant]
     Active Substance: FAMOTIDINE
     Indication: Gastrooesophageal reflux disease
     Dosage: 40 MILLIGRAM IN 0.5 DAYS
     Route: 048
     Dates: start: 1997
  5. TRAZODONE HYDROCHLORIDE [Concomitant]
     Active Substance: TRAZODONE HYDROCHLORIDE
     Indication: Anxiety
     Dosage: 1 TABLET IN THE EVENING/FORM STRENGTH: 600 MG
     Route: 048
     Dates: start: 20190528
  6. ZOPIGEN [Concomitant]
     Indication: Sleep disorder
     Dosage: 1 TABLET IN THE EVENING?FORM STRENGTH: 10 MG
     Route: 048
     Dates: start: 2008
  7. CLOZAPINE [Concomitant]
     Active Substance: CLOZAPINE
     Indication: Hallucination
     Dosage: 1 TABLET IN THE EVENING?FORM STRENGTH: 25 MG
     Route: 048
     Dates: start: 202201
  8. PERINDOPRIL [Concomitant]
     Active Substance: PERINDOPRIL
     Indication: Hypertension
     Dosage: FORM STRENGTH: 4 MG
     Route: 048
     Dates: start: 2015
  9. CARBIDOPA\ENTACAPONE\LEVODOPA [Concomitant]
     Active Substance: CARBIDOPA\ENTACAPONE\LEVODOPA
     Indication: Parkinson^s disease
     Dosage: 200 MG LEVODOPA, 50 MG CARBIDOPA AND 200 MG ENTACAPONE / TABLET, 1 TABLET AT NIGHT
     Route: 048
     Dates: start: 2016
  10. CARBIDOPA\ENTACAPONE\LEVODOPA [Concomitant]
     Active Substance: CARBIDOPA\ENTACAPONE\LEVODOPA
     Indication: Parkinson^s disease
     Dosage: 150 MG LEVODOPA, 37.5 MG CARBIDOPA AND 200 MG ENTACAPONE / TABLET?FREQUENCY TEXT: 1 TABLET AT NIGHT
     Route: 048
     Dates: start: 20220919

REACTIONS (7)
  - Parkinson^s disease [Not Recovered/Not Resolved]
  - Stoma site inflammation [Recovering/Resolving]
  - Stoma site discharge [Not Recovered/Not Resolved]
  - Dyskinesia [Recovered/Resolved]
  - Cognitive disorder [Not Recovered/Not Resolved]
  - Overdose [Unknown]
  - Device kink [Recovered/Resolved]

NARRATIVE: CASE EVENT DATE: 20220801
